FAERS Safety Report 9775694 (Version 4)
Quarter: 2014Q1

REPORT INFORMATION
  Report Type: Spontaneous
  Country: DE (occurrence: DE)
  Receive Date: 20131220
  Receipt Date: 20140205
  Transmission Date: 20141002
  Serious: Yes (Death, Life-Threatening, Hospitalization)
  Sender: FDA-Public Use
  Company Number: DE-PFIZER INC-2013360372

PATIENT
  Age: 82 Year
  Sex: Female
  Weight: 75 kg

DRUGS (9)
  1. CLARITHROMYCIN [Suspect]
     Indication: ATYPICAL PNEUMONIA
     Dosage: 250 MG, 4X/DAY (2-0-2)
     Route: 048
     Dates: start: 20131115, end: 20131120
  2. TAZOBAC EF [Suspect]
     Indication: ATYPICAL PNEUMONIA
     Dosage: 4.5 G, 3X/DAY
     Route: 042
     Dates: start: 20131113, end: 20131120
  3. VALDOXAN [Suspect]
     Indication: DEPRESSION
     Dosage: 25 MG, 1X/DAY (0-0-0-1)
     Route: 048
     Dates: start: 20131114, end: 20131120
  4. SIMVAHEXAL [Suspect]
     Indication: CORONARY ARTERY DISEASE
     Dosage: 20 MG, 1X/DAY
     Route: 048
  5. MARCUMAR [Suspect]
     Dosage: UNK
     Route: 048
  6. ENAHEXAL [Concomitant]
     Dosage: UNK
     Route: 048
  7. TILIDIN [Concomitant]
     Indication: GROIN PAIN
     Dosage: UNK
  8. NOVALGIN [Concomitant]
     Indication: GROIN PAIN
     Dosage: UNK
  9. OPIPRAMOL [Concomitant]
     Indication: DEPRESSION
     Dosage: UNK

REACTIONS (9)
  - Cardiac failure [Fatal]
  - Drug-induced liver injury [Recovering/Resolving]
  - Blood cholesterol increased [Unknown]
  - Hepatic enzyme increased [Recovering/Resolving]
  - Generalised oedema [Unknown]
  - Protein deficiency [Unknown]
  - General physical health deterioration [Unknown]
  - Nausea [Unknown]
  - Listless [Unknown]
